FAERS Safety Report 9486189 (Version 1)
Quarter: 2013Q3

REPORT INFORMATION
  Report Type: Spontaneous
  Country: US (occurrence: None)
  Receive Date: 20130827
  Receipt Date: 20130827
  Transmission Date: 20140515
  Serious: Yes (Disabling)
  Sender: FDA-Public Use
  Company Number: None

PATIENT
  Age: 54 Year
  Sex: Male
  Weight: 61.24 kg

DRUGS (1)
  1. RECLAST [Suspect]
     Dosage: ONCE A YEAR -- INTO A VEIN
     Dates: start: 20130319

REACTIONS (6)
  - Fatigue [None]
  - Joint stiffness [None]
  - Arthralgia [None]
  - Osteoarthritis [None]
  - Poisoning [None]
  - Feeling abnormal [None]
